FAERS Safety Report 4288711-2 (Version None)
Quarter: 2004Q1

REPORT INFORMATION
  Report Type: 
  Country: None (occurrence: None)
  Receive Date: 20040209
  Receipt Date: 20030113
  Transmission Date: 20041129
  Serious: Yes (Hospitalization, Disabling)
  Sender: FDA-Public Use
  Company Number: WAES 0301USA01087

PATIENT
  Age: 49 Year
  Sex: Male
  Weight: 85 kg

DRUGS (8)
  1. NEXIUM [Concomitant]
     Indication: GASTROOESOPHAGEAL REFLUX DISEASE
     Dates: start: 19980101
  2. LASIX [Concomitant]
     Indication: CARDIAC DISORDER
     Dates: start: 20001101
  3. LASIX [Concomitant]
     Indication: HYPERTENSION
     Dates: start: 20001101
  4. ZAROXOLYN [Concomitant]
     Indication: HYPERTENSION
     Dates: start: 19991201
  5. OXYCONTIN [Concomitant]
     Dates: start: 20001101, end: 20001101
  6. VIOXX [Suspect]
     Indication: BACK PAIN
     Route: 048
     Dates: start: 20001008, end: 20020420
  7. TORSEMIDE [Concomitant]
     Indication: HYPERTENSION
     Dates: start: 19991201
  8. DIOVAN [Concomitant]
     Indication: HYPERTENSION
     Dates: start: 19991101, end: 20030401

REACTIONS (17)
  - BACK INJURY [None]
  - BACK PAIN [None]
  - BLOOD CHOLESTEROL INCREASED [None]
  - BLOOD TRIGLYCERIDES INCREASED [None]
  - CEREBROVASCULAR ACCIDENT [None]
  - CHEST PAIN [None]
  - CHRONIC FATIGUE SYNDROME [None]
  - DEPRESSION [None]
  - FLUID RETENTION [None]
  - HAEMATOCHEZIA [None]
  - HYPOXIA [None]
  - LOBAR PNEUMONIA [None]
  - LOW DENSITY LIPOPROTEIN INCREASED [None]
  - MYOCARDIAL INFARCTION [None]
  - PNEUMONIA [None]
  - RASH [None]
  - RENAL FAILURE ACUTE [None]
